FAERS Safety Report 24256724 (Version 2)
Quarter: 2024Q3

REPORT INFORMATION
  Report Type: Spontaneous
  Country: US (occurrence: US)
  Receive Date: 20240828
  Receipt Date: 20240912
  Transmission Date: 20241017
  Serious: Yes (Other)
  Sender: APOTEX
  Company Number: US-APOTEX-2024AP009595

PATIENT
  Sex: Female
  Weight: 83.9 kg

DRUGS (6)
  1. ATORVASTATIN CALCIUM [Suspect]
     Active Substance: ATORVASTATIN CALCIUM
     Indication: Blood cholesterol abnormal
     Dosage: 1 DOSAGE FORM, Q.H.S.
     Route: 048
     Dates: end: 202408
  2. GABAPENTIN [Suspect]
     Active Substance: GABAPENTIN
     Indication: Neuralgia
     Dosage: UNK
     Route: 065
  3. LISINOPRIL [Concomitant]
     Active Substance: LISINOPRIL
     Indication: Blood pressure abnormal
     Dosage: 20 MILLIGRAM, QD
     Route: 065
  4. LEVOTHYROXINE [Concomitant]
     Active Substance: LEVOTHYROXINE\LEVOTHYROXINE SODIUM
     Indication: Thyroid disorder
     Dosage: UNK, QD
     Route: 065
  5. TRAZODONE [Concomitant]
     Active Substance: TRAZODONE HYDROCHLORIDE
     Indication: Sleep disorder
     Dosage: UNK, Q.H.S.
     Route: 065
  6. MOUNJARO [Concomitant]
     Active Substance: TIRZEPATIDE
     Indication: Type 2 diabetes mellitus
     Dosage: UNK, Q.WK.
     Route: 065

REACTIONS (11)
  - Gait disturbance [Recovering/Resolving]
  - Muscular weakness [Recovering/Resolving]
  - Brain fog [Recovering/Resolving]
  - Intervertebral disc protrusion [Recovering/Resolving]
  - Muscle atrophy [Recovering/Resolving]
  - Condition aggravated [Recovering/Resolving]
  - Type 2 diabetes mellitus [Recovering/Resolving]
  - Asthenia [Recovering/Resolving]
  - Pain in extremity [Recovering/Resolving]
  - Fatigue [Recovering/Resolving]
  - Drug effect less than expected [Unknown]
